FAERS Safety Report 9914723 (Version 1)
Quarter: 2014Q1

REPORT INFORMATION
  Report Type: Spontaneous
  Country: PL (occurrence: PL)
  Receive Date: 20140220
  Receipt Date: 20140220
  Transmission Date: 20141002
  Serious: Yes (Other)
  Sender: FDA-Public Use
  Company Number: PL-PFIZER INC-2014044196

PATIENT
  Sex: Male

DRUGS (1)
  1. ZYVOXID [Suspect]

REACTIONS (1)
  - Petechiae [Recovered/Resolved]
